FAERS Safety Report 11365297 (Version 1)
Quarter: 2015Q3

REPORT INFORMATION
  Report Type: Spontaneous
  Country: AT (occurrence: AT)
  Receive Date: 20150811
  Receipt Date: 20150811
  Transmission Date: 20151125
  Serious: Yes (Other)
  Sender: FDA-Public Use
  Company Number: AT-009507513-1507AUT010443

PATIENT
  Age: 54 Year
  Sex: Female
  Weight: 64.5 kg

DRUGS (5)
  1. LYRICA [Concomitant]
     Active Substance: PREGABALIN
     Indication: POLYNEUROPATHY
     Dosage: 75 MG, BID (ONE IN MORNING AND ONE AT NIGHT)
  2. ESTROFEM (ESTRADIOL) [Concomitant]
     Dosage: 1 MG, QD (ONE IN MORNING)
     Route: 048
  3. EZETROL [Suspect]
     Active Substance: EZETIMIBE
     Indication: TYPE IIA HYPERLIPIDAEMIA
     Dosage: 10 MG, QD
     Route: 048
     Dates: start: 20150720, end: 20150720
  4. SIMVASTATIN. [Interacting]
     Active Substance: SIMVASTATIN
     Indication: TYPE IIA HYPERLIPIDAEMIA
     Dosage: 20 MG, QD
     Route: 048
     Dates: start: 20150703, end: 20150719
  5. RESTEX [Concomitant]
     Active Substance: BENSERAZIDE
     Indication: RESTLESS LEGS SYNDROME
     Dosage: 1 CAPSULE(DF), BID(ONE IN MORNING AND ONE AT NIGHT)

REACTIONS (4)
  - Drug interaction [Recovered/Resolved]
  - Muscular weakness [Recovered/Resolved]
  - Discomfort [Recovered/Resolved]
  - Restless legs syndrome [Recovered/Resolved]

NARRATIVE: CASE EVENT DATE: 20150707
